FAERS Safety Report 20150462 (Version 2)
Quarter: 2021Q4

REPORT INFORMATION
  Report Type: Spontaneous
  Country: IL (occurrence: IL)
  Receive Date: 20211206
  Receipt Date: 20211207
  Transmission Date: 20220304
  Serious: Yes (Death, Hospitalization, Other)
  Sender: FDA-Public Use
  Company Number: IL-BoehringerIngelheim-2021-BI-141973

PATIENT
  Age: 68 Year
  Sex: Female

DRUGS (3)
  1. EMPAGLIFLOZIN\METFORMIN HYDROCHLORIDE [Suspect]
     Active Substance: EMPAGLIFLOZIN\METFORMIN HYDROCHLORIDE
     Indication: Type 2 diabetes mellitus
  2. METFORMIN [Concomitant]
     Active Substance: METFORMIN HYDROCHLORIDE
     Indication: Product used for unknown indication
  3. ENALAPRIL MALEATE [Concomitant]
     Active Substance: ENALAPRIL MALEATE
     Indication: Product used for unknown indication

REACTIONS (10)
  - Myocardial infarction [Fatal]
  - Asthenia [Fatal]
  - Abdominal pain [Fatal]
  - Nausea [Fatal]
  - Blood glucose increased [Fatal]
  - Diabetic ketoacidosis [Fatal]
  - Metabolic acidosis [Fatal]
  - Cardiogenic shock [Fatal]
  - Vomiting [Fatal]
  - Abscess [Unknown]
